FAERS Safety Report 23648076 (Version 1)
Quarter: 2024Q1

REPORT INFORMATION
  Report Type: Report from Study
  Country: RU (occurrence: RU)
  Receive Date: 20240319
  Receipt Date: 20240319
  Transmission Date: 20240410
  Serious: Yes (Other)
  Sender: FDA-Public Use
  Company Number: RU-002147023-NVSC2024RU039720

PATIENT
  Age: 48 Year
  Sex: Male

DRUGS (1)
  1. INCLISIRAN [Suspect]
     Active Substance: INCLISIRAN
     Indication: Type IIa hyperlipidaemia
     Dosage: 284MG/1.5 ML, (SUBSEQUENT DOSE AFTER THREE MONTHS THEN EVERY 6 MONTHS)
     Route: 058
     Dates: start: 20231214

REACTIONS (1)
  - Lipoprotein (a) increased [Unknown]

NARRATIVE: CASE EVENT DATE: 20240222
